FAERS Safety Report 4590690-5 (Version None)
Quarter: 2005Q1

REPORT INFORMATION
  Report Type: 
  Country: None (occurrence: None)
  Receive Date: 20050224
  Receipt Date: 20040809
  Transmission Date: 20050727
  Serious: Yes (Hospitalization)
  Sender: FDA-Public Use
  Company Number: DE-MERCK-0408DEU00056

PATIENT
  Age: 55 Year
  Sex: Female

DRUGS (6)
  1. SINGULAIR [Suspect]
     Indication: ASTHMA
     Route: 048
     Dates: start: 20031202, end: 20040601
  2. PREDNISOLONE [Concomitant]
     Route: 065
     Dates: start: 20031119, end: 20040601
  3. PREDNISOLONE [Concomitant]
     Route: 065
     Dates: start: 20040601
  4. FLUTICASONE PROPIONATE AND SALMETEROL XINAFOATE [Concomitant]
     Route: 065
     Dates: start: 20020101
  5. HYDROCHLOROTHIAZIDE AND TELMISARTAN [Concomitant]
     Route: 065
     Dates: start: 19990101
  6. LEVOTHYROXINE SODIUM [Concomitant]
     Route: 065
     Dates: start: 19940101

REACTIONS (16)
  - CHEST PAIN [None]
  - CHOLECYSTITIS CHRONIC [None]
  - CORONARY ARTERY EMBOLISM [None]
  - DUODENITIS [None]
  - FEELING ABNORMAL [None]
  - GENERAL PHYSICAL HEALTH DETERIORATION [None]
  - HEPATOMEGALY [None]
  - HYPEREOSINOPHILIC SYNDROME [None]
  - LIVER DISORDER [None]
  - MYOCARDIAL INFARCTION [None]
  - PERICARDIAL EFFUSION [None]
  - PERICARDITIS [None]
  - PLEURAL EFFUSION [None]
  - THERAPY NON-RESPONDER [None]
  - VASCULITIS [None]
  - VENTRICULAR HYPOKINESIA [None]
